FAERS Safety Report 10540605 (Version 2)
Quarter: 2014Q4

REPORT INFORMATION
  Report Type: Report from Study
  Country: CA (occurrence: CA)
  Receive Date: 20141024
  Receipt Date: 20141024
  Transmission Date: 20150529
  Serious: Yes (Death)
  Sender: FDA-Public Use
  Company Number: CA-INCYTE CORPORATION-2012IN002270

PATIENT
  Age: 83 Year
  Sex: Male

DRUGS (4)
  1. JAKAFI [Suspect]
     Active Substance: RUXOLITINIB
     Dosage: 10 MG, BID
     Route: 048
  2. JAKAFI [Suspect]
     Active Substance: RUXOLITINIB
     Dosage: 5 MG, BID
     Route: 048
     Dates: start: 201309, end: 20140814
  3. JAKAFI [Suspect]
     Active Substance: RUXOLITINIB
     Indication: MYELOFIBROSIS
     Dosage: 5 MG, BID
     Route: 048
     Dates: start: 20121001
  4. JAKAFI [Suspect]
     Active Substance: RUXOLITINIB
     Dosage: 5 MG, BID
     Route: 048
     Dates: end: 20130822

REACTIONS (20)
  - Nightmare [Unknown]
  - Asthenia [Not Recovered/Not Resolved]
  - Diarrhoea [Unknown]
  - Skin burning sensation [Unknown]
  - Constipation [Recovering/Resolving]
  - Pruritus [Unknown]
  - Splenomegaly [Unknown]
  - Insomnia [Unknown]
  - Abdominal pain [Unknown]
  - Malaise [Unknown]
  - Platelet count decreased [Unknown]
  - Death [Fatal]
  - Hyperhidrosis [Unknown]
  - Decreased appetite [Unknown]
  - Depressed mood [Not Recovered/Not Resolved]
  - Somnolence [Unknown]
  - Fatigue [Unknown]
  - Abdominal pain upper [Recovered/Resolved]
  - Flatulence [Unknown]
  - Erythema [Unknown]

NARRATIVE: CASE EVENT DATE: 20141001
